FAERS Safety Report 5265358-2 (Version None)
Quarter: 2007Q1

REPORT INFORMATION
  Report Type: 
  Country: None (occurrence: None)
  Receive Date: 20070314
  Receipt Date: 20070302
  Transmission Date: 20070707
  Serious: Yes (Other)
  Sender: FDA-Public Use
  Company Number: US-SHR-US-2006-032335

PATIENT
  Age: 49 Year
  Sex: Female

DRUGS (2)
  1. BETASERON [Suspect]
     Indication: RELAPSING-REMITTING MULTIPLE SCLEROSIS
     Dosage: 2 MIU, EVERY 2D
     Route: 058
     Dates: start: 20061019, end: 20061024
  2. BETASERON [Suspect]
     Dosage: 4 MIU, EVERY 2D
     Route: 058
     Dates: start: 20061024

REACTIONS (4)
  - EYE HAEMORRHAGE [None]
  - FLUSHING [None]
  - OCULAR HYPERAEMIA [None]
  - TRIGEMINAL NEURALGIA [None]
